FAERS Safety Report 9216446 (Version 3)
Quarter: 2014Q1

REPORT INFORMATION
  Report Type: Spontaneous
  Country: US (occurrence: None)
  Receive Date: 20130402
  Receipt Date: 20140129
  Transmission Date: 20141002
  Serious: Yes (Life-Threatening, Hospitalization, Other)
  Sender: FDA-Public Use
  Company Number: 13-01414

PATIENT
  Age: 70 Year
  Sex: Female

DRUGS (1)
  1. ALBUTEROL SULFATE [Suspect]
     Dosage: UNIDENTIFIED 054
     Dates: start: 201211

REACTIONS (3)
  - Hypersensitivity [None]
  - Dyspnoea [None]
  - Oxygen saturation decreased [None]
